FAERS Safety Report 6120271-3 (Version None)
Quarter: 2009Q1

REPORT INFORMATION
  Report Type: 
  Country: None (occurrence: None)
  Receive Date: 20090312
  Receipt Date: 20090303
  Transmission Date: 20090719
  Serious: Yes (Hospitalization)
  Sender: FDA-Public Use
  Company Number: MEDI-0008041

PATIENT
  Age: 4 Month
  Sex: Female
  Weight: 4.7174 kg

DRUGS (12)
  1. SYNAGIS [Suspect]
     Indication: MULTIPLE PREGNANCY
     Dosage: 15; 15; 15; 15 MG/KG
     Dates: start: 20081125, end: 20081223
  2. SYNAGIS [Suspect]
     Indication: OVERCROWDED HOUSING
     Dosage: 15; 15; 15; 15 MG/KG
     Dates: start: 20081125, end: 20081223
  3. SYNAGIS [Suspect]
     Indication: PREMATURE BABY
     Dosage: 15; 15; 15; 15 MG/KG
     Dates: start: 20081125, end: 20081223
  4. SYNAGIS [Suspect]
     Indication: MULTIPLE PREGNANCY
     Dosage: 15; 15; 15; 15 MG/KG
     Dates: start: 20081125
  5. SYNAGIS [Suspect]
     Indication: OVERCROWDED HOUSING
     Dosage: 15; 15; 15; 15 MG/KG
     Dates: start: 20081125
  6. SYNAGIS [Suspect]
     Indication: PREMATURE BABY
     Dosage: 15; 15; 15; 15 MG/KG
     Dates: start: 20081125
  7. SYNAGIS [Suspect]
     Indication: MULTIPLE PREGNANCY
     Dosage: 15; 15; 15; 15 MG/KG
     Dates: start: 20090119
  8. SYNAGIS [Suspect]
     Indication: OVERCROWDED HOUSING
     Dosage: 15; 15; 15; 15 MG/KG
     Dates: start: 20090119
  9. SYNAGIS [Suspect]
     Indication: PREMATURE BABY
     Dosage: 15; 15; 15; 15 MG/KG
     Dates: start: 20090119
  10. SYNAGIS [Suspect]
     Indication: MULTIPLE PREGNANCY
     Dosage: 15; 15; 15; 15 MG/KG
     Dates: start: 20090219
  11. SYNAGIS [Suspect]
     Indication: OVERCROWDED HOUSING
     Dosage: 15; 15; 15; 15 MG/KG
     Dates: start: 20090219
  12. SYNAGIS [Suspect]
     Indication: PREMATURE BABY
     Dosage: 15; 15; 15; 15 MG/KG
     Dates: start: 20090219

REACTIONS (3)
  - URETHRAL DISORDER [None]
  - URINARY TRACT INFECTION [None]
  - VIRAL INFECTION [None]
